FAERS Safety Report 6627657-9 (Version None)
Quarter: 2010Q1

REPORT INFORMATION
  Report Type: 
  Country: None (occurrence: None)
  Receive Date: 20100308
  Receipt Date: 20100218
  Transmission Date: 20100710
  Serious: Yes (Death)
  Sender: FDA-Public Use
  Company Number: 2010020045

PATIENT
  Age: 36 Year
  Sex: Male

DRUGS (8)
  1. ONSOLIS [Suspect]
     Indication: CANCER PAIN
     Dosage: BU
     Route: 002
     Dates: start: 20091111
  2. PROTONIX [Concomitant]
  3. SENOKOT [Concomitant]
  4. PHENERGAN (PROMETHAZINE) [Concomitant]
  5. OXYCONTIN [Concomitant]
  6. PERCOCET [Concomitant]
  7. ZOLOFT [Concomitant]
  8. ZEGERID (OMEPRAZOLE) [Concomitant]

REACTIONS (1)
  - MALIGNANT NEOPLASM PROGRESSION [None]
